FAERS Safety Report 20265497 (Version 1)
Quarter: 2021Q4

REPORT INFORMATION
  Report Type: Spontaneous
  Country: US (occurrence: US)
  Receive Date: 20211231
  Receipt Date: 20211231
  Transmission Date: 20220303
  Serious: Yes (Other)
  Sender: FDA-Public Use
  Company Number: US-LUPIN PHARMACEUTICALS INC.-2021-25994

PATIENT
  Age: 3 Decade
  Sex: Female

DRUGS (4)
  1. METHYLPREDNISOLONE [Suspect]
     Active Substance: METHYLPREDNISOLONE
     Indication: Encephalitis autoimmune
     Dosage: 1 GRAM 5 DAYS
     Route: 042
  2. CISPLATIN [Concomitant]
     Active Substance: CISPLATIN
     Indication: Teratoma
     Dosage: 20 MILLIGRAM/SQ. METER (DAYS 1-5 OF FOUR 21-DAY CYCLES)
     Route: 065
  3. ETOPOSIDE [Concomitant]
     Active Substance: ETOPOSIDE
     Indication: Teratoma
     Dosage: 100 MILLIGRAM/SQ. METER (DAYS 1-5 OF FOUR 21-DAY CYCLES)
     Route: 065
  4. BLEOMYCIN [Concomitant]
     Active Substance: BLEOMYCIN SULFATE
     Indication: Teratoma
     Dosage: 30 UNITS ON DAYS 2, 9 AND 16 OF FOUR 21-DAY CYCLES
     Route: 065

REACTIONS (1)
  - Substance-induced psychotic disorder [Recovered/Resolved]
